FAERS Safety Report 6143934-2 (Version None)
Quarter: 2009Q2

REPORT INFORMATION
  Report Type: 
  Country: None (occurrence: None)
  Receive Date: 20090406
  Receipt Date: 20090324
  Transmission Date: 20091009
  Serious: Yes (Death)
  Sender: FDA-Public Use
  Company Number: GB-RANBAXY-2009RR-20511

PATIENT
  Age: 49 Year
  Sex: Female

DRUGS (2)
  1. METFORMIN HCL [Suspect]
     Indication: DIABETES MELLITUS
     Dosage: 2 G, UNK
     Route: 048
  2. SOLIAN [Suspect]
     Dosage: 500 MG, BID
     Route: 048

REACTIONS (3)
  - DEATH [None]
  - DRUG LEVEL INCREASED [None]
  - DRUG TOXICITY [None]
